FAERS Safety Report 23047582 (Version 1)
Quarter: 2023Q4

REPORT INFORMATION
  Report Type: Spontaneous
  Country: US (occurrence: US)
  Receive Date: 20231010
  Receipt Date: 20231010
  Transmission Date: 20240110
  Serious: No
  Sender: FDA-Public Use
  Company Number: US-TEVA-2023-US-2930294

PATIENT
  Sex: Female

DRUGS (1)
  1. TRAZODONE HYDROCHLORIDE [Suspect]
     Active Substance: TRAZODONE HYDROCHLORIDE
     Indication: Insomnia
     Dosage: 100 MILLIGRAM
     Route: 065
     Dates: start: 2023

REACTIONS (4)
  - Insomnia [Unknown]
  - Drug ineffective for unapproved indication [Unknown]
  - Product prescribing issue [Unknown]
  - Product quality issue [Unknown]
